FAERS Safety Report 18536040 (Version 1)
Quarter: 2020Q4

REPORT INFORMATION
  Report Type: Spontaneous
  Country: US (occurrence: US)
  Receive Date: 20201123
  Receipt Date: 20201123
  Transmission Date: 20210114
  Serious: Yes (Other)
  Sender: FDA-Public Use
  Company Number: US-TEVA-2020-US-1816938

PATIENT
  Age: 88 Year
  Sex: Female

DRUGS (1)
  1. PROAIR HFA GENERIC [Suspect]
     Active Substance: ALBUTEROL SULFATE
     Route: 065

REACTIONS (5)
  - Lung neoplasm malignant [Unknown]
  - Adverse drug reaction [Unknown]
  - Cardiac operation [Unknown]
  - Immune system disorder [Unknown]
  - Dyspnoea [Unknown]

NARRATIVE: CASE EVENT DATE: 2012
